FAERS Safety Report 8130942-5 (Version None)
Quarter: 2012Q1

REPORT INFORMATION
  Report Type: 
  Country: None (occurrence: None)
  Receive Date: 20120213
  Receipt Date: 20120206
  Transmission Date: 20120608
  Serious: No
  Sender: FDA-Public Use
  Company Number: US-PFIZER INC-2012034221

PATIENT
  Age: 71 Year
  Sex: Female
  Weight: 74.83 kg

DRUGS (3)
  1. LISINOPRIL [Concomitant]
     Indication: HYPERTENSION
     Dosage: 20 MG, DAILY
  2. ATENOLOL [Concomitant]
     Indication: HYPERTENSION
     Dosage: 50 MG, DAILY
  3. ARTHROTEC [Suspect]
     Indication: ARTHRITIS
     Dosage: UNK, 2X/DAY

REACTIONS (1)
  - NASOPHARYNGITIS [None]
